FAERS Safety Report 14930869 (Version 1)
Quarter: 2018Q2

REPORT INFORMATION
  Report Type: Spontaneous
  Country: US (occurrence: US)
  Receive Date: 20180524
  Receipt Date: 20180524
  Transmission Date: 20180711
  Serious: No
  Sender: FDA-Public Use
  Company Number: US-BAUSCH-BL-2018-007335

PATIENT
  Age: 78 Year
  Sex: Female
  Weight: 61.29 kg

DRUGS (3)
  1. PREDNISOLONE. [Concomitant]
     Active Substance: PREDNISOLONE
     Indication: PRODUCT USED FOR UNKNOWN INDICATION
  2. PROLENSA [Suspect]
     Active Substance: BROMFENAC SODIUM
     Dosage: END OF FEB/2018
     Route: 047
     Dates: start: 201802
  3. PROLENSA [Suspect]
     Active Substance: BROMFENAC SODIUM
     Indication: POST PROCEDURAL INFLAMMATION
     Route: 047
     Dates: start: 20180209, end: 201802

REACTIONS (3)
  - Product use issue [Recovered/Resolved]
  - Drug prescribing error [Recovered/Resolved]
  - Vision blurred [Not Recovered/Not Resolved]

NARRATIVE: CASE EVENT DATE: 2018
